FAERS Safety Report 25277338 (Version 1)
Quarter: 2025Q2

REPORT INFORMATION
  Report Type: Spontaneous
  Country: US (occurrence: None)
  Receive Date: 20250506
  Receipt Date: 20250506
  Transmission Date: 20250716
  Serious: No
  Sender: FDA-CTU
  Company Number: None

PATIENT
  Age: 26 Year
  Sex: Male

DRUGS (1)
  1. CABOTEGRAVIR [Suspect]
     Active Substance: CABOTEGRAVIR
     Indication: Exposure to communicable disease
     Route: 030
     Dates: start: 20250411, end: 20250411

REACTIONS (2)
  - Inflammatory bowel disease [None]
  - Condition aggravated [None]

NARRATIVE: CASE EVENT DATE: 20250411
